FAERS Safety Report 10962745 (Version 1)
Quarter: 2015Q1

REPORT INFORMATION
  Report Type: Report from Study
  Country: CO (occurrence: CO)
  Receive Date: 20150327
  Receipt Date: 20150327
  Transmission Date: 20150721
  Serious: Yes (Death, Hospitalization)
  Sender: FDA-Public Use
  Company Number: CO-ABBVIE-15P-036-1367727-00

PATIENT
  Age: 69 Year
  Sex: Male

DRUGS (1)
  1. HUMIRA [Suspect]
     Active Substance: ADALIMUMAB
     Indication: PSORIASIS
     Route: 058
     Dates: start: 20140107, end: 20141031

REACTIONS (4)
  - Malaise [Fatal]
  - Respiratory disorder [Fatal]
  - Cardiovascular disorder [Fatal]
  - Malaise [Unknown]

NARRATIVE: CASE EVENT DATE: 20150309
